FAERS Safety Report 7017697-2 (Version None)
Quarter: 2010Q3

REPORT INFORMATION
  Report Type: 
  Country: None (occurrence: None)
  Receive Date: 20100927
  Receipt Date: 20100927
  Transmission Date: 20110219
  Serious: Yes (Other)
  Sender: FDA-Public Use
  Company Number: None

PATIENT
  Sex: Female
  Weight: 77.302 kg

DRUGS (1)
  1. AZITHROMYCIN [Suspect]
     Indication: PNEUMONIA
     Dosage: 500MG Q24H IV
     Route: 042
     Dates: start: 20100920, end: 20100920

REACTIONS (2)
  - HYPOAESTHESIA [None]
  - PARAESTHESIA [None]
